FAERS Safety Report 12840306 (Version 1)
Quarter: 2016Q4

REPORT INFORMATION
  Report Type: Spontaneous
  Country: US (occurrence: US)
  Receive Date: 20161012
  Receipt Date: 20161012
  Transmission Date: 20170207
  Serious: No
  Sender: FDA-Public Use
  Company Number: US-BAYER-2016-196009

PATIENT
  Sex: Male

DRUGS (1)
  1. ALEVE [Suspect]
     Active Substance: NAPROXEN SODIUM
     Dosage: UNK

REACTIONS (6)
  - Ligament sprain [Unknown]
  - Pruritus [Unknown]
  - Syncope [Unknown]
  - Vomiting [Unknown]
  - Fall [Unknown]
  - Drug hypersensitivity [Unknown]
